FAERS Safety Report 7228042-1 (Version None)
Quarter: 2011Q1

REPORT INFORMATION
  Report Type: 
  Country: None (occurrence: None)
  Receive Date: 20110114
  Receipt Date: 20110103
  Transmission Date: 20110831
  Serious: No
  Sender: FDA-Public Use
  Company Number: US-B.I. PHARMACEUTICALS,INC./RIDGEFIELD-2011-BP-00478BP

PATIENT
  Sex: Female

DRUGS (3)
  1. TOPROL-XL [Concomitant]
  2. PRADAXA [Suspect]
     Indication: ATRIAL FIBRILLATION
     Dosage: 300 MG
     Route: 048
     Dates: start: 20101201, end: 20101201
  3. CLARITIN [Concomitant]

REACTIONS (4)
  - RASH [None]
  - PRURITUS [None]
  - SKIN WARM [None]
  - ERYTHEMA [None]
